FAERS Safety Report 8925550 (Version 1)
Quarter: 2012Q4

REPORT INFORMATION
  Report Type: 
  Country: US (occurrence: US)
  Receive Date: 20121126
  Receipt Date: 20121126
  Transmission Date: 20130627
  Serious: Yes (Other)
  Sender: FDA-Public Use
  Company Number: PHHY2012US104877

PATIENT
  Age: 43 Year
  Sex: Female

DRUGS (2)
  1. ACARBOSE [Suspect]
     Indication: DIABETES MELLITUS
  2. EXCEDRIN EXTRA STRENGTH [Suspect]
     Indication: HEADACHE
     Dosage: 1 g, Q6H

REACTIONS (6)
  - Hepatic failure [Unknown]
  - Jaundice [Unknown]
  - Hepatic enzyme increased [Recovered/Resolved]
  - Prothrombin time prolonged [Unknown]
  - Hepatic necrosis [Unknown]
  - Potentiating drug interaction [Unknown]
